FAERS Safety Report 4506220-X (Version None)
Quarter: 2004Q4

REPORT INFORMATION
  Report Type: 
  Country: None (occurrence: None)
  Receive Date: 20041119
  Receipt Date: 20041019
  Transmission Date: 20050328
  Serious: Yes (Death)
  Sender: FDA-Public Use
  Company Number: CN-MERCK-0410CHN00035

PATIENT
  Sex: Male

DRUGS (6)
  1. VIOXX [Suspect]
     Indication: RHEUMATOID ARTHRITIS
     Route: 048
     Dates: start: 20020405, end: 20030827
  2. NITRENDIPINE [Concomitant]
     Indication: HYPERTENSION
     Route: 048
     Dates: start: 20020405
  3. PIPERAZINE [Concomitant]
     Indication: RENAL IMPAIRMENT
     Route: 048
     Dates: start: 20020405
  4. [THERAPY UNSPECIFIED] [Concomitant]
     Route: 048
  5. [THERAPY UNSPECIFIED] [Concomitant]
     Route: 048
  6. [THERAPY UNSPECIFIED] [Concomitant]
     Route: 048

REACTIONS (5)
  - BLOOD PRESSURE INCREASED [None]
  - CEREBRAL HAEMORRHAGE [None]
  - EPISTAXIS [None]
  - HAEMATURIA [None]
  - MOUTH HAEMORRHAGE [None]
